FAERS Safety Report 8822483 (Version 6)
Quarter: 2013Q2

REPORT INFORMATION
  Report Type: Report from Study
  Country: DE (occurrence: DE)
  Receive Date: 20121003
  Receipt Date: 20130628
  Transmission Date: 20140414
  Serious: Yes (Life-Threatening, Hospitalization, Other)
  Sender: FDA-Public Use
  Company Number: DE-CELGENEUS-062-21880-12082743

PATIENT
  Age: 67 Year
  Sex: Male
  Weight: 76 kg

DRUGS (18)
  1. REVLIMID [Suspect]
     Indication: PLASMA CELL MYELOMA
     Dosage: 15 MILLIGRAM
     Route: 048
     Dates: start: 20120810, end: 20120824
  2. REVLIMID [Suspect]
     Dosage: 15 MILLIGRAM
     Route: 048
     Dates: end: 20120926
  3. REVLIMID [Suspect]
     Dosage: 15 MILLIGRAM
     Route: 048
     Dates: start: 20121010, end: 20121012
  4. REVLIMID [Suspect]
     Route: 048
     Dates: end: 20121105
  5. PIOGLITAZONE [Suspect]
     Indication: PLASMA CELL MYELOMA
     Dosage: 60 MILLIGRAM
     Route: 048
     Dates: start: 20120810, end: 20120825
  6. PIOGLITAZONE [Suspect]
     Dosage: 60 MILLIGRAM
     Route: 048
     Dates: end: 20120926
  7. PIOGLITAZONE [Suspect]
     Dosage: 15 MILLIGRAM
     Route: 048
     Dates: start: 20121010, end: 20121012
  8. PIOGLITAZONE [Suspect]
     Route: 065
     Dates: end: 20121105
  9. DEXAMETHASONE [Suspect]
     Indication: PLASMA CELL MYELOMA
     Dosage: 40 MILLIGRAM
     Route: 048
     Dates: start: 20120810, end: 20120825
  10. DEXAMETHASONE [Suspect]
     Dosage: 1 MILLIGRAM
     Route: 048
     Dates: end: 20120926
  11. DEXAMETHASONE [Suspect]
     Dosage: 1 MILLIGRAM
     Route: 048
     Dates: start: 20121010, end: 20121012
  12. DEXAMETHASONE [Suspect]
     Route: 065
     Dates: end: 20121105
  13. DEXAMETHASONE [Suspect]
     Route: 048
  14. TREOSULFAN [Suspect]
     Indication: PLASMA CELL MYELOMA
     Dosage: 250 MILLIGRAM
     Route: 048
     Dates: start: 20120810, end: 20120824
  15. TREOSULFAN [Suspect]
     Dosage: 500 MILLIGRAM
     Route: 048
     Dates: end: 20120926
  16. TREOSULFAN [Suspect]
     Dosage: 500 MILLIGRAM
     Route: 048
     Dates: start: 20111010, end: 20121012
  17. TREOSULFAN [Suspect]
     Route: 065
     Dates: end: 20121105
  18. TREOSULFAN [Suspect]
     Dosage: 500 MILLIGRAM
     Route: 048

REACTIONS (3)
  - Inflammation [Recovering/Resolving]
  - Inflammation [Recovering/Resolving]
  - Infection [Unknown]
